FAERS Safety Report 11501674 (Version 1)
Quarter: 2015Q3

REPORT INFORMATION
  Report Type: Spontaneous
  Country: GB (occurrence: GB)
  Receive Date: 20150914
  Receipt Date: 20150914
  Transmission Date: 20151125
  Serious: Yes (Hospitalization, Other)
  Sender: FDA-Public Use
  Company Number: GB-GLAXOSMITHKLINE-GB2015GSK027048

PATIENT
  Age: 75 Year
  Sex: Female

DRUGS (4)
  1. ATENOLOL. [Concomitant]
     Active Substance: ATENOLOL
     Indication: HYPERTENSION
     Dosage: 50 MG, 1D
  2. ACICLOVIR [Suspect]
     Active Substance: ACYCLOVIR
     Dosage: 200 MG, UNK
     Route: 048
  3. NIFEDIPINE. [Concomitant]
     Active Substance: NIFEDIPINE
     Indication: HYPERTENSION
     Dosage: 60 MG, 1D
  4. ACICLOVIR [Suspect]
     Active Substance: ACYCLOVIR
     Indication: MOUTH ULCERATION
     Dosage: 10 MG/KG, UNK
     Route: 042

REACTIONS (12)
  - Myoclonus [Unknown]
  - Polyuria [Unknown]
  - Cerebral infarction [Unknown]
  - Acute kidney injury [Unknown]
  - Blood sodium decreased [Unknown]
  - C-reactive protein increased [Unknown]
  - Neurotoxicity [Unknown]
  - Balance disorder [Unknown]
  - Hallucination, visual [Unknown]
  - Blood osmolarity decreased [Unknown]
  - Confusional state [Unknown]
  - Lymphocyte count decreased [Recovering/Resolving]
